FAERS Safety Report 9701955 (Version 1)
Quarter: 2013Q4

REPORT INFORMATION
  Report Type: Spontaneous
  Country: US (occurrence: None)
  Receive Date: 20131120
  Receipt Date: 20131120
  Transmission Date: 20140711
  Serious: No
  Sender: FDA-Public Use
  Company Number: None

PATIENT
  Sex: Female

DRUGS (3)
  1. SUTENT [Suspect]
  2. TORISEL [Suspect]
  3. INLYTA [Suspect]

REACTIONS (5)
  - Blister [None]
  - Pain [None]
  - Nausea [None]
  - Vomiting [None]
  - Drug ineffective [None]
